FAERS Safety Report 11971597 (Version 7)
Quarter: 2019Q1

REPORT INFORMATION
  Report Type: Report from Study
  Country: US (occurrence: US)
  Receive Date: 20160128
  Receipt Date: 20190327
  Transmission Date: 20190417
  Serious: Yes (Death, Hospitalization, Other)
  Sender: FDA-Public Use
  Company Number: US-SA-2016SA002274

PATIENT
  Age: 54 Year
  Sex: Male

DRUGS (2)
  1. ALEMTUZUMAB [Suspect]
     Active Substance: ALEMTUZUMAB
     Indication: MULTIPLE SCLEROSIS
     Dosage: 12 MG,QD
     Route: 041
     Dates: start: 20150608, end: 20150612
  2. ALEMTUZUMAB [Suspect]
     Active Substance: ALEMTUZUMAB
     Dosage: 12 MG, QD
     Route: 041
     Dates: start: 20160808, end: 20160810

REACTIONS (18)
  - Pain [Unknown]
  - Lymphocyte count decreased [Not Recovered/Not Resolved]
  - Memory impairment [Not Recovered/Not Resolved]
  - Muscle spasticity [Not Recovered/Not Resolved]
  - Fluid retention [Unknown]
  - Hospitalisation [Unknown]
  - Laboratory test abnormal [Not Recovered/Not Resolved]
  - Multiple sclerosis [Fatal]
  - Ill-defined disorder [Not Recovered/Not Resolved]
  - Musculoskeletal pain [Not Recovered/Not Resolved]
  - Pain in jaw [Not Recovered/Not Resolved]
  - Platelet count decreased [Not Recovered/Not Resolved]
  - Dysphagia [Fatal]
  - Learning disorder [Not Recovered/Not Resolved]
  - Gait disturbance [Unknown]
  - Dyspnoea [Unknown]
  - Chest pain [Recovering/Resolving]
  - Impaired driving ability [Not Recovered/Not Resolved]

NARRATIVE: CASE EVENT DATE: 2015
